FAERS Safety Report 7916102-9 (Version None)
Quarter: 2011Q4

REPORT INFORMATION
  Report Type: 
  Country: None (occurrence: None)
  Receive Date: 20111116
  Receipt Date: 20111114
  Transmission Date: 20120403
  Serious: Yes (Other)
  Sender: FDA-Public Use
  Company Number: AU-ROCHE-1012937

PATIENT
  Age: 68 Year
  Sex: Female

DRUGS (6)
  1. CANDESARTAN CILEXETIL [Concomitant]
  2. ACETAMINOPHEN [Concomitant]
  3. SLOW-K [Concomitant]
  4. RITUXIMAB [Suspect]
     Indication: PRODUCT USED FOR UNKNOWN INDICATION
     Route: 042
     Dates: start: 20110903, end: 20110903
  5. DEXAMETHASONE [Concomitant]
  6. PANTOPRAZOLE [Concomitant]

REACTIONS (7)
  - OEDEMA [None]
  - COMA SCALE ABNORMAL [None]
  - LOCAL SWELLING [None]
  - RETCHING [None]
  - DYSPNOEA [None]
  - VOMITING [None]
  - SPEECH DISORDER [None]
